FAERS Safety Report 21366284 (Version 1)
Quarter: 2022Q3

REPORT INFORMATION
  Report Type: Report from Study
  Country: BR (occurrence: BR)
  Receive Date: 20220922
  Receipt Date: 20220922
  Transmission Date: 20221027
  Serious: Yes (Other)
  Sender: FDA-Public Use
  Company Number: BR-JNJFOC-20220931219

PATIENT
  Sex: Female

DRUGS (1)
  1. INFLIXIMAB [Suspect]
     Active Substance: INFLIXIMAB
     Indication: Psoriatic arthropathy
     Route: 041
     Dates: start: 20160624

REACTIONS (7)
  - Liver injury [Unknown]
  - Gastrointestinal fungal infection [Unknown]
  - COVID-19 [Unknown]
  - Lactose intolerance [Unknown]
  - Gluten sensitivity [Unknown]
  - Depression [Unknown]
  - Memory impairment [Unknown]
